FAERS Safety Report 12286340 (Version 5)
Quarter: 2016Q4

REPORT INFORMATION
  Report Type: Spontaneous
  Country: US (occurrence: US)
  Receive Date: 20160420
  Receipt Date: 20161028
  Transmission Date: 20170207
  Serious: No
  Sender: FDA-Public Use
  Company Number: US-PFIZER INC-2016200863

PATIENT
  Age: 65 Year
  Sex: Female

DRUGS (9)
  1. IBRANCE [Suspect]
     Active Substance: PALBOCICLIB
     Dosage: 125 MG, CYCLIC (1 CAP DAILY DAYS 1-21 OF A 28 DAY CYCLE, 1 CAPSULE DAILY FOR 21 DAY)
     Dates: start: 20160407
  2. ATENOLOL. [Concomitant]
     Active Substance: ATENOLOL
     Dosage: UNK
  3. HYDROCODONE/ACETAMINOPHEN [Concomitant]
     Active Substance: ACETAMINOPHEN\HYDROCODONE
     Dosage: UNK
  4. IBRANCE [Suspect]
     Active Substance: PALBOCICLIB
     Dosage: 125 MG, DAILY
     Dates: start: 20160407
  5. IBRANCE [Suspect]
     Active Substance: PALBOCICLIB
     Indication: BREAST CANCER FEMALE
     Dosage: UNK
  6. CLARITIN [Concomitant]
     Active Substance: LORATADINE
     Dosage: UNK
  7. KLOR-CON M10 [Concomitant]
     Active Substance: POTASSIUM CHLORIDE
     Dosage: UNK
  8. BAYER ASPIRIN [Concomitant]
     Active Substance: ASPIRIN
     Dosage: UNK
  9. TYLENOL [Concomitant]
     Active Substance: ACETAMINOPHEN
     Dosage: UNK

REACTIONS (13)
  - Rash [Unknown]
  - Feeling hot [Unknown]
  - Fatigue [Unknown]
  - Blood count abnormal [Unknown]
  - Feeling cold [Unknown]
  - Paraesthesia [Not Recovered/Not Resolved]
  - Pruritus [Unknown]
  - Somnolence [Unknown]
  - Hypoaesthesia [Not Recovered/Not Resolved]
  - Pain in extremity [Not Recovered/Not Resolved]
  - Arthralgia [Not Recovered/Not Resolved]
  - Product use issue [Unknown]
  - Extra dose administered [Unknown]
